FAERS Safety Report 23037086 (Version 5)
Quarter: 2024Q2

REPORT INFORMATION
  Report Type: Report from Study
  Country: DE (occurrence: DE)
  Receive Date: 20231006
  Receipt Date: 20240628
  Transmission Date: 20240716
  Serious: No
  Sender: FDA-Public Use
  Company Number: DE-ROCHE-3434574

PATIENT
  Age: 34 Year
  Sex: Female

DRUGS (1)
  1. OCREVUS [Suspect]
     Active Substance: OCRELIZUMAB
     Indication: Relapsing-remitting multiple sclerosis
     Dosage: FIRST FULL DOSE IN JULY 2023
     Route: 042

REACTIONS (5)
  - Oral herpes [Not Recovered/Not Resolved]
  - Nasal herpes [Not Recovered/Not Resolved]
  - Fatigue [Recovered/Resolved]
  - Gastrointestinal infection [Recovered/Resolved]
  - Muscular weakness [Not Recovered/Not Resolved]

NARRATIVE: CASE EVENT DATE: 20230101
